FAERS Safety Report 23905994 (Version 1)
Quarter: 2024Q2

REPORT INFORMATION
  Report Type: Spontaneous
  Country: AT (occurrence: AT)
  Receive Date: 20240527
  Receipt Date: 20240527
  Transmission Date: 20240716
  Serious: Yes (Hospitalization, Other)
  Sender: FDA-Public Use
  Company Number: AT-ABBVIE-5769470

PATIENT
  Sex: Female

DRUGS (7)
  1. ADALIMUMAB [Suspect]
     Active Substance: ADALIMUMAB\ISOPROPYL ALCOHOL
     Indication: Crohn^s disease
     Route: 058
     Dates: start: 2018, end: 2019
  2. SKYRIZI [Suspect]
     Active Substance: RISANKIZUMAB-RZAA
     Indication: Crohn^s disease
     Route: 058
  3. SKYRIZI [Suspect]
     Active Substance: RISANKIZUMAB-RZAA
     Indication: Crohn^s disease
     Route: 042
     Dates: start: 2018, end: 2018
  4. RINVOQ [Suspect]
     Active Substance: UPADACITINIB
     Indication: Crohn^s disease
     Route: 048
     Dates: start: 20230918, end: 20230920
  5. RINVOQ [Suspect]
     Active Substance: UPADACITINIB
     Indication: Crohn^s disease
     Route: 048
     Dates: start: 202310
  6. RINVOQ [Suspect]
     Active Substance: UPADACITINIB
     Indication: Crohn^s disease
     Route: 048
  7. CYCLOSPORINE [Concomitant]
     Active Substance: CYCLOSPORINE
     Indication: Product used for unknown indication
     Dates: start: 202204

REACTIONS (21)
  - Large intestinal stenosis [Unknown]
  - Liver function test increased [Unknown]
  - Colitis ulcerative [Unknown]
  - Dysuria [Unknown]
  - Panic reaction [Unknown]
  - Hypotension [Unknown]
  - Abdominal pain upper [Unknown]
  - Headache [Unknown]
  - Tachycardia [Unknown]
  - Chills [Unknown]
  - Pyoderma gangrenosum [Recovered/Resolved]
  - Intestinal dilatation [Unknown]
  - Therapeutic product effect decreased [Unknown]
  - Skin disorder [Unknown]
  - Dizziness [Unknown]
  - Urticaria [Unknown]
  - Pituitary-dependent Cushing^s syndrome [Unknown]
  - Erythema [Unknown]
  - Limb mass [Recovered/Resolved]
  - Skin ulcer [Recovered/Resolved]
  - Pseudopolyp [Unknown]

NARRATIVE: CASE EVENT DATE: 20190301
